FAERS Safety Report 12937068 (Version 1)
Quarter: 2016Q4

REPORT INFORMATION
  Report Type: Other
  Country: None (occurrence: TR)
  Receive Date: 20161114
  Receipt Date: 20161114
  Transmission Date: 20170207
  Serious: Yes (Hospitalization)
  Sender: FDA-Public Use
  Company Number: TR-MERCK KGAA-1059498

PATIENT

DRUGS (1)
  1. NOVOTHYROX [Suspect]
     Active Substance: LEVOTHYROXINE SODIUM

REACTIONS (6)
  - Bradycardia [None]
  - Hypopnoea [None]
  - Toxicity to various agents [None]
  - Tachycardia [None]
  - Generalised tonic-clonic seizure [None]
  - Hypotension [None]
